FAERS Safety Report 26044120 (Version 2)
Quarter: 2025Q4

REPORT INFORMATION
  Report Type: Spontaneous
  Country: EU (occurrence: EU)
  Receive Date: 20251114
  Receipt Date: 20251205
  Transmission Date: 20260117
  Serious: Yes (Hospitalization, Other)
  Sender: BAUSCH AND LOMB
  Company Number: EU-BAUSCH-BH-2025-020154

PATIENT
  Age: 14 Year
  Sex: Male
  Weight: 24 kg

DRUGS (7)
  1. METRONIDAZOLE [Suspect]
     Active Substance: METRONIDAZOLE
     Indication: Mouth ulceration
     Route: 065
     Dates: start: 20190608, end: 2019
  2. CLINDAMYCIN [Suspect]
     Active Substance: CLINDAMYCIN
     Indication: Mouth ulceration
     Route: 065
     Dates: start: 20190608
  3. NYSTATIN [Concomitant]
     Active Substance: NYSTATIN
     Indication: Mouth ulceration
     Dosage: EVERY OTHER DAY
     Dates: start: 201905
  4. SULFAMETHOXAZOLE\TRIMETHOPRIM [Concomitant]
     Active Substance: SULFAMETHOXAZOLE\TRIMETHOPRIM
     Indication: Mouth ulceration
     Dosage: EVERY OTHER DAY
     Dates: start: 201905
  5. AMOXICILLIN [Concomitant]
     Active Substance: AMOXICILLIN
     Indication: Mouth ulceration
     Dates: start: 201905
  6. FLUCONAZOLE [Concomitant]
     Active Substance: FLUCONAZOLE
     Indication: Mouth ulceration
     Dosage: EVERY OTHER DAY
     Dates: start: 201905
  7. PREDNISONE [Concomitant]
     Active Substance: PREDNISONE
     Indication: Mouth ulceration

REACTIONS (2)
  - Neutropenia [Recovered/Resolved]
  - Therapy non-responder [Unknown]

NARRATIVE: CASE EVENT DATE: 20190601
